FAERS Safety Report 5761559-5 (Version None)
Quarter: 2008Q2

REPORT INFORMATION
  Report Type: 
  Country: None (occurrence: None)
  Receive Date: 20080606
  Receipt Date: 20080528
  Transmission Date: 20081010
  Serious: Yes (Other)
  Sender: FDA-Public Use
  Company Number: JP-PFIZER INC-2008046333

PATIENT
  Sex: Female

DRUGS (2)
  1. IRINOTECAN HCL [Suspect]
     Indication: OVARIAN CANCER
     Route: 042
  2. MITOMYCIN [Concomitant]
     Indication: OVARIAN CANCER

REACTIONS (2)
  - FACIAL PALSY [None]
  - HYPOAESTHESIA [None]
